FAERS Safety Report 9294136 (Version 1)
Quarter: 2013Q2

REPORT INFORMATION
  Report Type: Spontaneous
  Country: US (occurrence: US)
  Receive Date: 20130516
  Receipt Date: 20130516
  Transmission Date: 20140414
  Serious: Yes (Hospitalization)
  Sender: FDA-Public Use
  Company Number: US-PFIZER INC-2013146418

PATIENT
  Age: 61 Year
  Sex: Male

DRUGS (4)
  1. REVATIO [Suspect]
     Dosage: UNK
  2. LETAIRIS [Suspect]
     Indication: PULMONARY ARTERIAL HYPERTENSION
     Dosage: 10 MG, UNK
     Dates: start: 20070205
  3. TYVASO [Suspect]
     Indication: PULMONARY ARTERIAL HYPERTENSION
     Dosage: UNK
     Dates: start: 20100402
  4. PLAVIX [Concomitant]
     Dosage: UNK

REACTIONS (3)
  - Lung disorder [Unknown]
  - Dyspnoea [Unknown]
  - Bronchitis [Unknown]
